FAERS Safety Report 5185997-7 (Version None)
Quarter: 2006Q4

REPORT INFORMATION
  Report Type: 
  Country: None (occurrence: None)
  Receive Date: 20061220
  Receipt Date: 20061010
  Transmission Date: 20070319
  Serious: No
  Sender: FDA-Public Use
  Company Number: US-GLAXOSMITHKLINE-A0623036A

PATIENT
  Age: 55 Year

DRUGS (3)
  1. EQUATE NTS 21MG [Suspect]
     Dates: start: 20061009
  2. NICORETTE [Suspect]
  3. NICORETTE [Suspect]

REACTIONS (8)
  - ABNORMAL DREAMS [None]
  - ANXIETY [None]
  - ERUCTATION [None]
  - FEELING JITTERY [None]
  - MOOD ALTERED [None]
  - ORAL DISCOMFORT [None]
  - POOR QUALITY SLEEP [None]
  - THROAT IRRITATION [None]
